FAERS Safety Report 8609326-9 (Version None)
Quarter: 2012Q3

REPORT INFORMATION
  Report Type: 
  Country: None (occurrence: None)
  Receive Date: 20120821
  Receipt Date: 20120820
  Transmission Date: 20120928
  Serious: Yes (Life-Threatening, Hospitalization, Disabling)
  Sender: FDA-Public Use
  Company Number: PHHO2012US011915

PATIENT
  Sex: Male
  Weight: 89.2 kg

DRUGS (15)
  1. FLUOROURACIL [Suspect]
     Indication: COLORECTAL CANCER
     Dosage: 1200 MG/M2, QD
     Dates: start: 20120809, end: 20120811
  2. AVASTIN [Concomitant]
     Dosage: NO TREATMENT
     Dates: start: 20120809, end: 20120809
  3. DICLOFENAC [Concomitant]
  4. AVASTIN [Concomitant]
     Indication: COLORECTAL CANCER
     Dosage: UNK
  5. FENTANYL [Concomitant]
  6. FINASTERIDE [Concomitant]
  7. COMPAZINE [Concomitant]
  8. AFINITOR [Suspect]
     Indication: COLORECTAL CANCER
     Dosage: UNK
     Route: 048
     Dates: start: 20120809
  9. EMLA [Concomitant]
  10. ACYCLOVIR [Concomitant]
  11. OXALIPLATIN [Concomitant]
     Indication: COLORECTAL CANCER
  12. AMBIEN [Concomitant]
  13. ZOFRAN [Concomitant]
  14. IBUPROFEN [Concomitant]
  15. BACLOFEN [Concomitant]

REACTIONS (4)
  - HEPATIC INFECTION [None]
  - INTESTINAL PERFORATION [None]
  - ABDOMINAL INFECTION [None]
  - CARDIAC ARREST [None]
